FAERS Safety Report 8174825-3 (Version None)
Quarter: 2012Q1

REPORT INFORMATION
  Report Type: 
  Country: None (occurrence: None)
  Receive Date: 20120229
  Receipt Date: 20120217
  Transmission Date: 20120608
  Serious: Yes (Hospitalization, Other)
  Sender: FDA-Public Use
  Company Number: PHEH2012US000525

PATIENT
  Sex: Male
  Weight: 86.168 kg

DRUGS (8)
  1. LOVENOX [Concomitant]
     Dosage: 90 MG, BID
     Route: 058
  2. FENTANYL [Concomitant]
     Dosage: 100 UG, Q48H
  3. COREG [Concomitant]
  4. MAXZIDE [Concomitant]
     Dosage: (37.5/25 MG), QD AT BEDTIME
  5. OXYCODONE HCL [Concomitant]
     Dosage: 15 MG, TID
  6. CLONIDINE HCL [Suspect]
     Dosage: 0.5 DF X (0.1 MG), TID
  7. NORVASC [Concomitant]
     Dosage: UNK
  8. VALTURNA [Suspect]
     Dosage: 1 DF X (300/320 MG), DAILY

REACTIONS (43)
  - RENAL FAILURE ACUTE [None]
  - MALAISE [None]
  - ALBUMIN GLOBULIN RATIO DECREASED [None]
  - WHITE BLOOD CELLS URINE POSITIVE [None]
  - HAEMATOCRIT DECREASED [None]
  - DEHYDRATION [None]
  - OEDEMA [None]
  - DIARRHOEA [None]
  - MUSCLE SPASMS [None]
  - IRON DEFICIENCY ANAEMIA [None]
  - BLOOD GLUCOSE INCREASED [None]
  - BLOOD IMMUNOGLOBULIN A INCREASED [None]
  - VITAMIN D DECREASED [None]
  - RECTAL HAEMORRHAGE [None]
  - BLOOD THYROID STIMULATING HORMONE DECREASED [None]
  - LYMPHOCYTE COUNT DECREASED [None]
  - URINE LEUKOCYTE ESTERASE POSITIVE [None]
  - BACTERIAL TEST POSITIVE [None]
  - CARBON DIOXIDE INCREASED [None]
  - RED CELL DISTRIBUTION WIDTH INCREASED [None]
  - BLOOD PHOSPHORUS INCREASED [None]
  - BLOOD SODIUM DECREASED [None]
  - CARBON DIOXIDE DECREASED [None]
  - LETHARGY [None]
  - PROTEIN TOTAL INCREASED [None]
  - MUCOSAL DRYNESS [None]
  - BLOOD IRON DECREASED [None]
  - BLOOD CALCIUM INCREASED [None]
  - LIPASE INCREASED [None]
  - CONTUSION [None]
  - RENAL DISORDER [None]
  - VOMITING [None]
  - ABDOMINAL PAIN [None]
  - JUGULAR VEIN DISTENSION [None]
  - BLOOD CHLORIDE INCREASED [None]
  - BLOOD POTASSIUM INCREASED [None]
  - URINE OUTPUT DECREASED [None]
  - NAUSEA [None]
  - MEAN CELL VOLUME DECREASED [None]
  - MEAN CELL HAEMOGLOBIN DECREASED [None]
  - BLOOD ALBUMIN INCREASED [None]
  - PLATELET COUNT INCREASED [None]
  - PROTEIN URINE PRESENT [None]
